FAERS Safety Report 12665714 (Version 2)
Quarter: 2016Q3

REPORT INFORMATION
  Report Type: Report from Study
  Country: US (occurrence: US)
  Receive Date: 20160818
  Receipt Date: 20160825
  Transmission Date: 20161109
  Serious: Yes (Hospitalization, Other)
  Sender: FDA-Public Use
  Company Number: US-ABBVIE-16P-163-1703459-00

PATIENT
  Age: 28 Year
  Sex: Female

DRUGS (6)
  1. LUPRON DEPOT [Suspect]
     Active Substance: LEUPROLIDE ACETATE
     Indication: PRODUCT USED FOR UNKNOWN INDICATION
     Route: 030
     Dates: start: 2004
  2. HUMALOG [Concomitant]
     Active Substance: INSULIN LISPRO
     Indication: TYPE 1 DIABETES MELLITUS
     Route: 065
  3. SIMVASTATIN. [Concomitant]
     Active Substance: SIMVASTATIN
     Indication: PROPHYLAXIS
     Route: 065
  4. ZYRTEC [Concomitant]
     Active Substance: CETIRIZINE HYDROCHLORIDE
     Indication: HYPERSENSITIVITY
     Route: 065
  5. ZESTRIL [Concomitant]
     Active Substance: LISINOPRIL
     Indication: PRODUCT USED FOR UNKNOWN INDICATION
  6. PREVACID [Concomitant]
     Active Substance: LANSOPRAZOLE
     Indication: GASTROOESOPHAGEAL REFLUX DISEASE
     Route: 065

REACTIONS (10)
  - Femur fracture [Recovered/Resolved]
  - Osteonecrosis [Recovered/Resolved]
  - Limb injury [Recovered/Resolved]
  - Road traffic accident [Recovered/Resolved]
  - Limb injury [Recovered/Resolved]
  - Blood glucose increased [Recovering/Resolving]
  - Muscle spasms [Recovered/Resolved]
  - Shoulder operation [Recovering/Resolving]
  - Fall [Recovered/Resolved]
  - Abdominal distension [Recovered/Resolved]

NARRATIVE: CASE EVENT DATE: 201008
